FAERS Safety Report 11074400 (Version 1)
Quarter: 2015Q2

REPORT INFORMATION
  Report Type: Spontaneous
  Country: US (occurrence: None)
  Receive Date: 20150428
  Receipt Date: 20150428
  Transmission Date: 20150821
  Serious: No
  Sender: FDA-Public Use
  Company Number: None

PATIENT
  Age: 53 Year
  Sex: Female
  Weight: 90.72 kg

DRUGS (11)
  1. AMITRIPTYLINE [Concomitant]
     Active Substance: AMITRIPTYLINE
  2. NEUPRO [Concomitant]
     Active Substance: ROTIGOTINE
  3. CLONAZEPAM. [Concomitant]
     Active Substance: CLONAZEPAM
  4. SIMVASTATIN. [Concomitant]
     Active Substance: SIMVASTATIN
  5. OMEPRAZOLE. [Concomitant]
     Active Substance: OMEPRAZOLE
  6. CLARITIN [Concomitant]
     Active Substance: LORATADINE
  7. PRIVIGEN [Suspect]
     Active Substance: HUMAN IMMUNOGLOBULIN G
     Indication: BLOOD IMMUNOGLOBULIN G DECREASED
     Route: 042
     Dates: start: 20150323, end: 20150323
  8. NADALOL [Concomitant]
  9. VITAMIN B12 [Concomitant]
     Active Substance: CYANOCOBALAMIN
  10. VITAMIN D [Concomitant]
     Active Substance: CHOLECALCIFEROL
  11. BENADRYL [Concomitant]
     Active Substance: DIPHENHYDRAMINE HYDROCHLORIDE

REACTIONS (9)
  - Pyrexia [None]
  - Pruritus [None]
  - Visual impairment [None]
  - Flushing [None]
  - Dyspnoea [None]
  - Pruritus generalised [None]
  - Pain in extremity [None]
  - Vision blurred [None]
  - Urticaria [None]

NARRATIVE: CASE EVENT DATE: 20150323
